FAERS Safety Report 25408106 (Version 1)
Quarter: 2025Q2

REPORT INFORMATION
  Report Type: Spontaneous
  Country: US (occurrence: US)
  Receive Date: 20250606
  Receipt Date: 20250606
  Transmission Date: 20250716
  Serious: No
  Sender: SANOFI AVENTIS
  Company Number: US-SA-2025SA160467

PATIENT
  Age: 64 Year
  Sex: Male
  Weight: 82.73 kg

DRUGS (2)
  1. DUPIXENT [Suspect]
     Active Substance: DUPILUMAB
     Indication: Dermatitis atopic
     Route: 058
  2. DUPIXENT [Suspect]
     Active Substance: DUPILUMAB
     Dosage: 300 MG, QOW
     Route: 058

REACTIONS (6)
  - Influenza [Unknown]
  - COVID-19 [Unknown]
  - Gait inability [Unknown]
  - Feeding disorder [Unknown]
  - Pain [Unknown]
  - Neck injury [Unknown]

NARRATIVE: CASE EVENT DATE: 20250530
